FAERS Safety Report 5593883-3 (Version None)
Quarter: 2007Q4

REPORT INFORMATION
  Report Type: 
  Country: None (occurrence: None)
  Receive Date: 20071218
  Receipt Date: 20070507
  Transmission Date: 20080405
  Serious: Yes (Hospitalization)
  Sender: FDA-Public Use
  Company Number: 2007036778

PATIENT
  Age: 54 Year
  Sex: Female
  Weight: 122 kg

DRUGS (1)
  1. BEXTRA [Suspect]
     Indication: BACK INJURY
     Dosage: 20 MG (20 MG,1 IN 1 D)

REACTIONS (3)
  - CARDIAC FAILURE CONGESTIVE [None]
  - DEPRESSION [None]
  - MYOCARDIAL INFARCTION [None]
